FAERS Safety Report 12876186 (Version 1)
Quarter: 2016Q4

REPORT INFORMATION
  Report Type: Spontaneous
  Country: US (occurrence: US)
  Receive Date: 20161021
  Receipt Date: 20161021
  Transmission Date: 20170207
  Serious: Yes (Hospitalization)
  Sender: FDA-Public Use
  Company Number: None

PATIENT
  Age: 71 Year
  Sex: Male
  Weight: 64 kg

DRUGS (1)
  1. ABIRATERONE [Suspect]
     Active Substance: ABIRATERONE
     Indication: PROSTATE CANCER
     Route: 048

REACTIONS (5)
  - Pulmonary oedema [None]
  - Deep vein thrombosis [None]
  - Hypertension [None]
  - Arrhythmia [None]
  - Chest pain [None]

NARRATIVE: CASE EVENT DATE: 20160101
